FAERS Safety Report 23527737 (Version 1)
Quarter: 2024Q1

REPORT INFORMATION
  Report Type: Spontaneous
  Country: ES (occurrence: ES)
  Receive Date: 20240215
  Receipt Date: 20240215
  Transmission Date: 20240410
  Serious: Yes (Other)
  Sender: FDA-Public Use
  Company Number: ES-Hill Dermaceuticals, Inc.-2153239

PATIENT
  Sex: Female

DRUGS (2)
  1. TOLAK [Suspect]
     Active Substance: FLUOROURACIL
     Route: 061
     Dates: start: 20231025, end: 20231120
  2. TOLAK [Suspect]
     Active Substance: FLUOROURACIL

REACTIONS (5)
  - Skin reaction [Unknown]
  - Off label use [Unknown]
  - Product use in unapproved indication [Unknown]
  - Allergic reaction to excipient [Unknown]
  - Documented hypersensitivity to administered product [Unknown]

NARRATIVE: CASE EVENT DATE: 20231025
